FAERS Safety Report 12484461 (Version 1)
Quarter: 2016Q2

REPORT INFORMATION
  Report Type: Spontaneous
  Country: GR (occurrence: GR)
  Receive Date: 20160621
  Receipt Date: 20160621
  Transmission Date: 20160815
  Serious: Yes (Death, Other)
  Sender: FDA-Public Use
  Company Number: GR-009507513-1406GRC000842

PATIENT
  Age: 66 Year
  Sex: Female
  Weight: 73 kg

DRUGS (4)
  1. JANUMET [Suspect]
     Active Substance: METFORMIN HYDROCHLORIDE\SITAGLIPTIN PHOSPHATE
     Indication: TYPE 2 DIABETES MELLITUS
     Dosage: 1 TABLET IN THE MORNING AND ONE TABLET IN THE NIGHT, BID
     Route: 048
     Dates: start: 201405
  2. CRESTOR [Concomitant]
     Active Substance: ROSUVASTATIN CALCIUM
  3. SOLOSA [Concomitant]
     Active Substance: GLIMEPIRIDE
  4. JANUMET [Suspect]
     Active Substance: METFORMIN HYDROCHLORIDE\SITAGLIPTIN PHOSPHATE
     Dosage: 1 TABLET DAILY
     Route: 048
     Dates: start: 201405

REACTIONS (10)
  - Abdominal pain upper [Unknown]
  - Auscultation [Recovered/Resolved]
  - Macroangiopathy [Fatal]
  - Diabetes mellitus [Unknown]
  - Nausea [Recovered/Resolved]
  - Underdose [Unknown]
  - Cardiac arrest [Fatal]
  - Bronchitis [Recovered/Resolved]
  - Dizziness [Recovered/Resolved]
  - Eructation [Unknown]

NARRATIVE: CASE EVENT DATE: 201405
